FAERS Safety Report 9549485 (Version 1)
Quarter: 2013Q3

REPORT INFORMATION
  Report Type: Spontaneous
  Country: NO (occurrence: None)
  Receive Date: 20130919
  Receipt Date: 20130919
  Transmission Date: 20140515
  Serious: Yes (Hospitalization)
  Sender: FDA-Public Use
  Company Number: NGX_01971_2013

PATIENT
  Sex: Female

DRUGS (3)
  1. QUTENZA [Suspect]
     Indication: NEURALGIA
     Dosage: (DF TOPICAL)
     Dates: start: 20130909, end: 20130909
  2. QUTENZA [Suspect]
     Indication: COMPLEX REGIONAL PAIN SYNDROME
     Dosage: (DF TOPICAL)
     Dates: start: 20130909, end: 20130909
  3. EMLA [Concomitant]

REACTIONS (2)
  - Application site pain [None]
  - Application site discolouration [None]
